FAERS Safety Report 5661168-2 (Version None)
Quarter: 2008Q1

REPORT INFORMATION
  Report Type: 
  Country: None (occurrence: None)
  Receive Date: 20080303
  Receipt Date: 20080228
  Transmission Date: 20080703
  Serious: Yes (Other)
  Sender: FDA-Public Use
  Company Number: CHPA2008US02981

PATIENT
  Age: 69 Year
  Sex: Female

DRUGS (8)
  1. MAALOX MS TOTAL STOMACH RELIEF (NCH)(BISMUTH SUBSALICYLATE) SUSPENSION [Suspect]
     Indication: DYSPEPSIA
     Dosage: 4 TSP, QID, ORAL
     Route: 048
     Dates: start: 20080207
  2. ASPIRIN [Suspect]
     Indication: CARDIAC DISORDER
  3. PLAVIX [Concomitant]
  4. LISINOPRIL [Concomitant]
  5. OMEPRAZOLE [Concomitant]
  6. AMOX (AMOXICILLIN) [Concomitant]
  7. SIMVASTATIN [Concomitant]
  8. METOPROLOL TARTRATE [Concomitant]

REACTIONS (2)
  - FAECES DISCOLOURED [None]
  - HAEMATOCHEZIA [None]
